FAERS Safety Report 8144789-7 (Version None)
Quarter: 2012Q1

REPORT INFORMATION
  Report Type: 
  Country: None (occurrence: None)
  Receive Date: 20120217
  Receipt Date: 20120208
  Transmission Date: 20120608
  Serious: Yes (Hospitalization)
  Sender: FDA-Public Use
  Company Number: US-ACTELION-A-US2011-52532

PATIENT

DRUGS (8)
  1. TRACLEER [Suspect]
     Dosage: 125 MG, BID
     Route: 048
     Dates: end: 20110801
  2. COMBIVENT [Concomitant]
  3. ASPIRIN [Concomitant]
  4. OMEPRAZOLE [Concomitant]
  5. MOMETASONE FUROATE [Concomitant]
  6. TRACLEER [Suspect]
     Indication: PULMONARY ARTERIAL HYPERTENSION
     Dosage: 62.5 MG, BID
     Route: 048
     Dates: start: 20100401, end: 20110701
  7. CELEBREX [Concomitant]
  8. SIMVASTATIN [Concomitant]

REACTIONS (5)
  - DIZZINESS [None]
  - SENSORY LOSS [None]
  - NEUROLOGICAL EXAMINATION ABNORMAL [None]
  - HEMIPARESIS [None]
  - VERTIGO [None]
